FAERS Safety Report 5690621-0 (Version None)
Quarter: 2008Q1

REPORT INFORMATION
  Report Type: 
  Country: None (occurrence: None)
  Receive Date: 20080331
  Receipt Date: 20080331
  Transmission Date: 20080703
  Serious: No
  Sender: FDA-Public Use
  Company Number: None

PATIENT
  Sex: Female
  Weight: 95.709 kg

DRUGS (4)
  1. SERTRALINE [Suspect]
     Indication: SCHIZOPHRENIFORM DISORDER
     Dosage: 100 MG ONCE DAILY PO
     Route: 048
     Dates: start: 20061114
  2. SERTRALINE [Suspect]
     Indication: ANXIETY
     Dosage: 50 MG ONCE DAILY PO
     Route: 048
     Dates: start: 20061114
  3. SERTRALINE [Suspect]
     Indication: CEREBRAL PALSY
     Dosage: 50 MG ONCE DAILY PO
     Route: 048
     Dates: start: 20061114
  4. SERTRALINE [Suspect]
     Indication: DEPRESSION
     Dosage: 50 MG ONCE DAILY PO
     Route: 048
     Dates: start: 20061114

REACTIONS (5)
  - ABNORMAL BEHAVIOUR [None]
  - AGITATION [None]
  - DIZZINESS [None]
  - MALAISE [None]
  - PHARMACEUTICAL PRODUCT COMPLAINT [None]
